FAERS Safety Report 10382163 (Version 3)
Quarter: 2015Q2

REPORT INFORMATION
  Report Type: Spontaneous
  Country: US (occurrence: US)
  Receive Date: 20140813
  Receipt Date: 20150401
  Transmission Date: 20150821
  Serious: Yes (Death, Hospitalization, Disabling, Other)
  Sender: FDA-Public Use
  Company Number: US-009507513-1408USA007567

PATIENT
  Sex: Female
  Weight: 90.7 kg

DRUGS (1)
  1. JANUVIA [Suspect]
     Active Substance: SITAGLIPTIN PHOSPHATE
     Indication: TYPE 2 DIABETES MELLITUS
     Dosage: 100 MG, QD
     Route: 048
     Dates: start: 20080620, end: 20090714

REACTIONS (36)
  - Metastases to peritoneum [Unknown]
  - Duodenal obstruction [Unknown]
  - Stent placement [Unknown]
  - Biliary sphincterotomy [Unknown]
  - Bile duct obstruction [Unknown]
  - Urinary tract infection [Unknown]
  - Metastases to lymph nodes [Unknown]
  - Deep vein thrombosis [Unknown]
  - Haemorrhoids [Unknown]
  - Bile duct stent insertion [Unknown]
  - Ovarian cystectomy [Unknown]
  - Breast cyst excision [Unknown]
  - Obstruction gastric [Unknown]
  - Diabetes mellitus inadequate control [Unknown]
  - Uterine leiomyoma [Unknown]
  - Pancreatic carcinoma metastatic [Unknown]
  - Device occlusion [Unknown]
  - Hypertension [Unknown]
  - Metastases to lung [Unknown]
  - Stent placement [Unknown]
  - Arrhythmia [Unknown]
  - Hepatic enzyme increased [Unknown]
  - Biliary sphincterotomy [Unknown]
  - Depression [Unknown]
  - Anxiety [Unknown]
  - Iron deficiency anaemia [Unknown]
  - Tenderness [Unknown]
  - Metastases to liver [Unknown]
  - Bile duct stent insertion [Unknown]
  - Stent placement [Unknown]
  - Dyslipidaemia [Unknown]
  - Gastrooesophageal reflux disease [Unknown]
  - Umbilical hernia [Unknown]
  - Death [Fatal]
  - Stent placement [Unknown]
  - Muscle spasms [Unknown]

NARRATIVE: CASE EVENT DATE: 201106
